FAERS Safety Report 9348756 (Version 3)
Quarter: 2013Q3

REPORT INFORMATION
  Report Type: Report from Study
  Country: DE (occurrence: DE)
  Receive Date: 20130614
  Receipt Date: 20130826
  Transmission Date: 20140515
  Serious: Yes (Hospitalization)
  Sender: FDA-Public Use
  Company Number: DE-ABBOTT-13P-062-1102870-00

PATIENT
  Age: 36 Year
  Sex: Male
  Weight: 70 kg

DRUGS (2)
  1. HUMIRA [Suspect]
     Indication: PSORIASIS
     Route: 058
     Dates: start: 20120305, end: 20130522
  2. HUMIRA [Suspect]
     Dates: start: 20130812

REACTIONS (4)
  - Burnout syndrome [Recovered/Resolved]
  - Anxiety [Recovered/Resolved]
  - Hyperventilation [Recovered/Resolved]
  - Dyspnoea [Recovered/Resolved]
